FAERS Safety Report 4556583-4 (Version None)
Quarter: 2005Q1

REPORT INFORMATION
  Report Type: 
  Country: None (occurrence: None)
  Receive Date: 20050118
  Receipt Date: 20050105
  Transmission Date: 20050727
  Serious: Yes (Hospitalization, Other)
  Sender: FDA-Public Use
  Company Number: 2005005711

PATIENT
  Sex: Female

DRUGS (2)
  1. CELEBREX [Suspect]
     Indication: ARTHRITIS
     Dosage: 400 MG (1 IN 1 D), ORAL
     Route: 048
     Dates: end: 20030519
  2. AMLODIPINE BESYLATE [Concomitant]

REACTIONS (6)
  - ARTHRALGIA [None]
  - CARDIAC FAILURE CONGESTIVE [None]
  - FALL [None]
  - JOINT SPRAIN [None]
  - LOSS OF CONSCIOUSNESS [None]
  - PULMONARY EMBOLISM [None]
